FAERS Safety Report 5489508-8 (Version None)
Quarter: 2007Q4

REPORT INFORMATION
  Report Type: 
  Country: None (occurrence: None)
  Receive Date: 20071016
  Receipt Date: 20071016
  Transmission Date: 20080405
  Serious: Yes (Hospitalization)
  Sender: FDA-Public Use
  Company Number: None

PATIENT
  Age: 58 Year
  Sex: Male

DRUGS (1)
  1. CITALOPRAM HYDROBROMIDE [Suspect]
     Dosage: 40MG EVERY DAY PO
     Route: 048
     Dates: start: 20071002, end: 20071009

REACTIONS (4)
  - ARRHYTHMIA [None]
  - ELECTROCARDIOGRAM QT INTERVAL ABNORMAL [None]
  - INCORRECT DOSE ADMINISTERED [None]
  - SEDATION [None]
